FAERS Safety Report 7830743-9 (Version None)
Quarter: 2011Q4

REPORT INFORMATION
  Report Type: 
  Country: None (occurrence: None)
  Receive Date: 20111021
  Receipt Date: 20111017
  Transmission Date: 20120403
  Serious: Yes (Hospitalization, Other)
  Sender: FDA-Public Use
  Company Number: US-JNJFOC-20110410080

PATIENT
  Sex: Female
  Weight: 77.11 kg

DRUGS (4)
  1. SYMBICORT [Concomitant]
     Indication: ASTHMA
     Dosage: 160/4.5 MCG, 2 PUFFS
     Route: 055
  2. ALBUTEROL [Concomitant]
     Indication: ASTHMA
     Dosage: AS NEEDED
     Route: 055
  3. LEVAQUIN [Suspect]
     Indication: SINUSITIS
     Route: 048
     Dates: start: 20110414, end: 20110418
  4. AMBIEN [Concomitant]
     Indication: SLEEP DISORDER
     Route: 048

REACTIONS (1)
  - STEVENS-JOHNSON SYNDROME [None]
